FAERS Safety Report 9249698 (Version 1)
Quarter: 2013Q2

REPORT INFORMATION
  Report Type: Spontaneous
  Country: US (occurrence: US)
  Receive Date: 20130423
  Receipt Date: 20130423
  Transmission Date: 20140414
  Serious: No
  Sender: FDA-Public Use
  Company Number: US-BRISTOL-MYERS SQUIBB COMPANY-17273285

PATIENT
  Sex: Female

DRUGS (1)
  1. YERVOY [Suspect]
     Route: 042
     Dates: start: 201212

REACTIONS (4)
  - Throat irritation [Not Recovered/Not Resolved]
  - Rhinorrhoea [Not Recovered/Not Resolved]
  - Epistaxis [Unknown]
  - Nasal discomfort [Unknown]
